FAERS Safety Report 6917174-0 (Version None)
Quarter: 2010Q3

REPORT INFORMATION
  Report Type: 
  Country: None (occurrence: None)
  Receive Date: 20100810
  Receipt Date: 20090616
  Transmission Date: 20110219
  Serious: No
  Sender: FDA-Public Use
  Company Number: US-PFIZER INC-2009183939

PATIENT
  Sex: Female

DRUGS (3)
  1. DETROL [Interacting]
     Indication: HYPERTONIC BLADDER
     Dosage: 2 MG, 2X/DAY
     Route: 048
     Dates: start: 20090201
  2. KLOR-CON [Interacting]
     Indication: BLOOD POTASSIUM DECREASED
     Dosage: 8 MEQ, UNK
     Dates: start: 20081001, end: 20090313
  3. CYMBALTA [Suspect]
     Dosage: 120 MG, UNK

REACTIONS (7)
  - ABDOMINAL DISTENSION [None]
  - ABDOMINAL PAIN [None]
  - DRUG EFFECT DECREASED [None]
  - DRUG INTERACTION [None]
  - FAECES DISCOLOURED [None]
  - HEADACHE [None]
  - NAUSEA [None]
